FAERS Safety Report 8459295 (Version 2)
Quarter: 2017Q4

REPORT INFORMATION
  Report Type: Spontaneous
  Country: AU (occurrence: AU)
  Receive Date: 20120314
  Receipt Date: 20171113
  Transmission Date: 20180321
  Serious: Yes (Other)
  Sender: FDA-Public Use
  Company Number: AU-PFIZER INC-2012064736

PATIENT
  Age: 25 Year
  Sex: Male

DRUGS (5)
  1. ESCITALOPRAM OXALATE. [Interacting]
     Active Substance: ESCITALOPRAM OXALATE
     Indication: SUBSTANCE USE
  2. HYPERICUM [Interacting]
     Active Substance: ST. JOHN^S WORT
     Indication: SUBSTANCE ABUSE
  3. HYPERICUM [Interacting]
     Active Substance: ST. JOHN^S WORT
     Indication: ANXIETY
     Dosage: 900 MG, 1X/DAY
  4. ESCITALOPRAM OXALATE. [Interacting]
     Active Substance: ESCITALOPRAM OXALATE
     Indication: ANXIETY
     Dosage: 10 MG, 1X/DAY
  5. SERTRALINE HCL [Suspect]
     Active Substance: SERTRALINE HYDROCHLORIDE
     Dosage: 300 MG, 1X/DAY

REACTIONS (15)
  - Feeling of despair [Recovered/Resolved]
  - Physical assault [Recovered/Resolved]
  - Toxicity to various agents [Recovered/Resolved]
  - Agitation [Recovered/Resolved]
  - Impulsive behaviour [Recovered/Resolved]
  - Akathisia [Recovered/Resolved]
  - Personality change [Recovered/Resolved]
  - Aggression [Recovered/Resolved]
  - Overdose [Recovered/Resolved]
  - Paranoia [Recovered/Resolved]
  - Mania [Recovered/Resolved]
  - Ejaculation failure [Recovered/Resolved]
  - Drug interaction [Recovered/Resolved]
  - Suicide attempt [Recovered/Resolved]
  - Depressed mood [Recovered/Resolved]
